FAERS Safety Report 5597543-4 (Version None)
Quarter: 2008Q1

REPORT INFORMATION
  Report Type: 
  Country: None (occurrence: None)
  Receive Date: 20080121
  Receipt Date: 20080118
  Transmission Date: 20080703
  Serious: Yes (Hospitalization)
  Sender: FDA-Public Use
  Company Number: A0703978A

PATIENT
  Age: 64 Year
  Sex: Female

DRUGS (8)
  1. ALLI [Suspect]
     Route: 048
     Dates: start: 20071001, end: 20080117
  2. TRAZODONE HCL [Concomitant]
  3. EFFEXOR XR [Concomitant]
  4. AGGRENOX [Concomitant]
  5. LIPITOR [Concomitant]
  6. ALPRAZOLAM [Concomitant]
  7. PROMETRIUM [Concomitant]
  8. ESTRADIOL [Concomitant]

REACTIONS (5)
  - BLOOD SODIUM INCREASED [None]
  - DEHYDRATION [None]
  - DIARRHOEA [None]
  - DIZZINESS [None]
  - ORTHOSTATIC HYPOTENSION [None]
